FAERS Safety Report 14261583 (Version 1)
Quarter: 2017Q4

REPORT INFORMATION
  Report Type: Spontaneous
  Country: US (occurrence: US)
  Receive Date: 20171201
  Receipt Date: 20171201
  Transmission Date: 20180321
  Serious: No
  Sender: FDA-Public Use
  Company Number: None

PATIENT
  Age: 61 Year
  Sex: Female
  Weight: 67.5 kg

DRUGS (6)
  1. K-2 [Concomitant]
  2. RED YEAST RICE PLUS [Concomitant]
  3. ONE A DAY WOMEN^S MULTI-VITAMIN [Concomitant]
  4. ALENDRONATE SODIUM TABLETS, USP [Suspect]
     Active Substance: ALENDRONATE SODIUM
     Indication: OSTEOPOROSIS
     Dosage: ?          QUANTITY:1 TABLET(S);OTHER FREQUENCY:ONCE WEEKLY;?
     Route: 048
     Dates: start: 20171117, end: 20171124
  5. DHEA [Concomitant]
     Active Substance: PRASTERONE
  6. VITAMINS D-3 [Concomitant]

REACTIONS (13)
  - Paraesthesia [None]
  - Pruritus [None]
  - Nausea [None]
  - Flatulence [None]
  - Constipation [None]
  - Back pain [None]
  - Urticaria [None]
  - Musculoskeletal chest pain [None]
  - Hypoaesthesia [None]
  - Abdominal pain upper [None]
  - Vomiting [None]
  - Influenza like illness [None]
  - Bone pain [None]

NARRATIVE: CASE EVENT DATE: 20171124
